FAERS Safety Report 21701837 (Version 2)
Quarter: 2022Q4

REPORT INFORMATION
  Report Type: Spontaneous
  Country: SK (occurrence: None)
  Receive Date: 20221208
  Receipt Date: 20221221
  Transmission Date: 20230113
  Serious: Yes (Death, Other)
  Sender: FDA-Public Use
  Company Number: SK-Merck Healthcare KGaA-9370003

PATIENT
  Age: 72 Year
  Sex: Male

DRUGS (1)
  1. BAVENCIO [Suspect]
     Active Substance: AVELUMAB
     Indication: Transitional cell carcinoma
     Route: 042
     Dates: start: 20220824, end: 20221104

REACTIONS (8)
  - Cardiopulmonary failure [Fatal]
  - Deep vein thrombosis [Unknown]
  - Disease progression [Fatal]
  - General physical health deterioration [Unknown]
  - Blood urea increased [Unknown]
  - Inflammatory marker increased [Unknown]
  - Dyspnoea [Unknown]
  - Oedema peripheral [Unknown]
